FAERS Safety Report 6679306-1 (Version None)
Quarter: 2010Q2

REPORT INFORMATION
  Report Type: 
  Country: None (occurrence: None)
  Receive Date: 20100409
  Receipt Date: 20100326
  Transmission Date: 20101027
  Serious: Yes (Disabling, Other)
  Sender: FDA-Public Use
  Company Number: 8047884

PATIENT
  Sex: Female
  Weight: 62.2 kg

DRUGS (8)
  1. CERTOLIZUMAB PEGOL (CDP870) [Suspect]
     Indication: RHEUMATOID ARTHRITIS
     Dosage: (400 MG, DOSE FREQ.: ONCE MONTHLY SUBCUTANEOUS)
     Route: 058
     Dates: start: 20031031, end: 20090703
  2. METHOTREXATE [Concomitant]
  3. FOLIC ACID [Concomitant]
  4. MELOXICAM [Concomitant]
  5. LANSOPRAZOLE [Concomitant]
  6. ATENOLOL [Concomitant]
  7. AMLODIPINE [Concomitant]
  8. KENTERA [Concomitant]

REACTIONS (7)
  - ARTERIAL THROMBOSIS LIMB [None]
  - BLOOD PRESSURE INCREASED [None]
  - INTERMITTENT CLAUDICATION [None]
  - PERIPHERAL ARTERIAL OCCLUSIVE DISEASE [None]
  - PERIPHERAL ISCHAEMIA [None]
  - PULSE ABSENT [None]
  - SKIN ULCER [None]
